FAERS Safety Report 13044246 (Version 1)
Quarter: 2016Q4

REPORT INFORMATION
  Report Type: Spontaneous
  Country: US (occurrence: US)
  Receive Date: 20161220
  Receipt Date: 20161220
  Transmission Date: 20170207
  Serious: Yes (Other)
  Sender: FDA-Public Use
  Company Number: US-ROCHE-1027845

PATIENT
  Age: 65 Year
  Sex: Male
  Weight: 66.28 kg

DRUGS (8)
  1. NEXIUM [Concomitant]
     Active Substance: ESOMEPRAZOLE MAGNESIUM
  2. COLACE [Concomitant]
     Active Substance: DOCUSATE SODIUM
  3. B COMPLEX VITAMIN [Concomitant]
  4. OXYCODONE [Concomitant]
     Active Substance: OXYCODONE
  5. AMBIEN [Concomitant]
     Active Substance: ZOLPIDEM TARTRATE
  6. CALCIUM [Concomitant]
     Active Substance: CALCIUM
  7. ZELBORAF [Suspect]
     Active Substance: VEMURAFENIB
     Indication: MALIGNANT MELANOMA
     Route: 048
     Dates: start: 20120124, end: 20120210
  8. CRESTOR [Concomitant]
     Active Substance: ROSUVASTATIN CALCIUM

REACTIONS (2)
  - Pruritus [Unknown]
  - Liver function test increased [Unknown]

NARRATIVE: CASE EVENT DATE: 20120208
